FAERS Safety Report 8551776-3 (Version None)
Quarter: 2012Q3

REPORT INFORMATION
  Report Type: 
  Country: None (occurrence: None)
  Receive Date: 20120730
  Receipt Date: 20120720
  Transmission Date: 20120928
  Serious: Yes (Hospitalization, Other)
  Sender: FDA-Public Use
  Company Number: DE-ELI_LILLY_AND_COMPANY-DE201207006279

PATIENT
  Sex: Female

DRUGS (3)
  1. IRON [Concomitant]
  2. FORTEO [Suspect]
     Indication: OSTEOPOROSIS
     Dosage: UNK
     Route: 058
     Dates: start: 20110405
  3. ANALGESICS [Concomitant]

REACTIONS (4)
  - EPISTAXIS [None]
  - NAUSEA [None]
  - VOMITING [None]
  - SYNCOPE [None]
